FAERS Safety Report 5627141-5 (Version None)
Quarter: 2008Q1

REPORT INFORMATION
  Report Type: 
  Country: None (occurrence: None)
  Receive Date: 20080212
  Receipt Date: 20080212
  Transmission Date: 20080703
  Serious: No
  Sender: FDA-Public Use
  Company Number: None

PATIENT
  Age: 51 Year
  Sex: Female
  Weight: 65.7716 kg

DRUGS (4)
  1. SULFMETH/TRIMETH DS TAB @800MG-160MG [Suspect]
     Indication: STAPHYLOCOCCAL INFECTION
     Dosage: 20 2 PO TAKE ALL
     Route: 048
     Dates: start: 20080208, end: 20080218
  2. SULFMETH/TRIMETH DS TAB @800MG-160MG [Suspect]
     Indication: SWELLING FACE
     Dosage: 20 2 PO TAKE ALL
     Route: 048
     Dates: start: 20080208, end: 20080218
  3. CIPROFLOXACIN [Suspect]
     Indication: STAPHYLOCOCCAL INFECTION
     Dosage: 14 2 PO TAKE ALL
     Route: 048
     Dates: start: 20080208, end: 20080218
  4. CIPROFLOXACIN [Suspect]
     Indication: SWELLING FACE
     Dosage: 14 2 PO TAKE ALL
     Route: 048
     Dates: start: 20080208, end: 20080218

REACTIONS (12)
  - ANXIETY [None]
  - DRY MOUTH [None]
  - HEPATOMEGALY [None]
  - INSOMNIA [None]
  - MALAISE [None]
  - MUSCULOSKELETAL STIFFNESS [None]
  - NAUSEA [None]
  - NIGHTMARE [None]
  - PALPITATIONS [None]
  - PARAESTHESIA [None]
  - PERIPHERAL COLDNESS [None]
  - RESTLESSNESS [None]
